FAERS Safety Report 26206354 (Version 1)
Quarter: 2025Q4

REPORT INFORMATION
  Report Type: Spontaneous
  Country: US (occurrence: US)
  Receive Date: 20251229
  Receipt Date: 20251229
  Transmission Date: 20260117
  Serious: Yes (Other)
  Sender: AUROBINDO
  Company Number: US-MLMSERVICE-20251210-PI742065-00174-1

PATIENT
  Age: 33 Year
  Sex: Female

DRUGS (3)
  1. HALOPERIDOL [Suspect]
     Active Substance: HALOPERIDOL
     Indication: Delusion
     Dosage: 5 MILLIGRAM, DAILY
     Route: 065
  2. HALOPERIDOL [Suspect]
     Active Substance: HALOPERIDOL
     Indication: Hallucination, auditory
  3. HALOPERIDOL [Suspect]
     Active Substance: HALOPERIDOL
     Indication: Major depression

REACTIONS (3)
  - Dystonia [Unknown]
  - Akathisia [Unknown]
  - Extrapyramidal disorder [Unknown]
